FAERS Safety Report 24428572 (Version 6)
Quarter: 2025Q4

REPORT INFORMATION
  Report Type: Spontaneous
  Country: US (occurrence: US)
  Receive Date: 20241011
  Receipt Date: 20251231
  Transmission Date: 20260118
  Serious: Yes (Other)
  Sender: MERCK SHARP & DOHME LLC
  Company Number: None

PATIENT
  Sex: Male
  Weight: 40.1 kg

DRUGS (23)
  1. SOTATERCEPT [Suspect]
     Active Substance: SOTATERCEPT
     Indication: Product used for unknown indication
     Dates: start: 20240925
  2. SOTATERCEPT [Suspect]
     Active Substance: SOTATERCEPT
  3. SOTATERCEPT [Suspect]
     Active Substance: SOTATERCEPT
  4. SOTATERCEPT [Suspect]
     Active Substance: SOTATERCEPT
  5. REMODULIN [Suspect]
     Active Substance: TREPROSTINIL
     Indication: Pulmonary arterial hypertension
     Dosage: DOSE DESCRIPTION : 0.092 MICROGRAM/KILOGRAM, CONTINUOUS?CONCENTRATION: 1.0 MILLIGRAM PER MILLILITRE
     Route: 041
     Dates: start: 20181119
  6. REMODULIN [Suspect]
     Active Substance: TREPROSTINIL
     Indication: Pulmonary arterial hypertension
     Dosage: DOSE DESCRIPTION : 0.040 MICROGRAM/KILOGRAM, CONTINUOUS?CONCENTRATION: 1.0 MILLIGRAM PER MILLILITRE
     Route: 041
  7. CLONAZEPAM [Concomitant]
     Active Substance: CLONAZEPAM
     Dosage: DOSE DESCRIPTION : UNK
  8. ZYRTEC [Concomitant]
     Active Substance: CETIRIZINE HYDROCHLORIDE
     Dosage: DOSE DESCRIPTION : UNK
  9. IBUPROFEN [Concomitant]
     Active Substance: IBUPROFEN
     Dosage: DOSE DESCRIPTION : UNK
  10. VITAMIN D2 [Concomitant]
     Active Substance: ERGOCALCIFEROL
     Dosage: DOSE DESCRIPTION : UNK
  11. LETAIRIS [Concomitant]
     Active Substance: AMBRISENTAN
     Dosage: DOSE DESCRIPTION : UNK
  12. WARFARIN SODIUM [Concomitant]
     Active Substance: WARFARIN SODIUM
     Dosage: DOSE DESCRIPTION : UNK
  13. ACETAMINOPHEN [Concomitant]
     Active Substance: ACETAMINOPHEN
     Dosage: DOSE DESCRIPTION : UNK
  14. TADALAFIL [Concomitant]
     Active Substance: TADALAFIL
     Dosage: DOSE DESCRIPTION : UNK
  15. LEVALBUTEROL TARTRATE [Concomitant]
     Active Substance: LEVALBUTEROL TARTRATE
     Dosage: DOSE DESCRIPTION : UNK
  16. CLOBAZAM [Concomitant]
     Active Substance: CLOBAZAM
     Dosage: DOSE DESCRIPTION : UNK
  17. SYMBICORT [Concomitant]
     Active Substance: BUDESONIDE\FORMOTEROL FUMARATE DIHYDRATE
     Dosage: DOSE DESCRIPTION : UNK
  18. PREDNISONE [Concomitant]
     Active Substance: PREDNISONE
     Dosage: DOSE DESCRIPTION : UNK
  19. DIAZEPAM [Concomitant]
     Active Substance: DIAZEPAM
     Dosage: DOSE DESCRIPTION : UNK
  20. BENADRYL [Concomitant]
     Active Substance: DIPHENHYDRAMINE HYDROCHLORIDE
     Dosage: DOSE DESCRIPTION : UNK
  21. OXYGEN [Concomitant]
     Active Substance: OXYGEN
     Dosage: DOSE DESCRIPTION : UNK
  22. METHYLPREDNISOLONE SODIUM SUCCINATE [Concomitant]
     Active Substance: METHYLPREDNISOLONE SODIUM SUCCINATE
     Dosage: DOSE DESCRIPTION : UNK
  23. KEPPRA [Concomitant]
     Active Substance: LEVETIRACETAM

REACTIONS (8)
  - Seizure [Unknown]
  - Haemoglobin decreased [Unknown]
  - Illness [Unknown]
  - Flushing [Unknown]
  - Epistaxis [Unknown]
  - Diarrhoea [Unknown]
  - Product administered to patient of inappropriate age [Unknown]
  - Epistaxis [Not Recovered/Not Resolved]

NARRATIVE: CASE EVENT DATE: 20240101
